FAERS Safety Report 25697493 (Version 2)
Quarter: 2025Q3

REPORT INFORMATION
  Report Type: Spontaneous
  Country: US (occurrence: US)
  Receive Date: 20250818
  Receipt Date: 20250909
  Transmission Date: 20251021
  Serious: Yes (Life-Threatening, Hospitalization, Disabling, Other)
  Sender: NOVO NORDISK
  Company Number: US-NOVOPROD-1499302

PATIENT
  Age: 50 Year
  Sex: Female

DRUGS (4)
  1. NOVOLOG [Suspect]
     Active Substance: INSULIN ASPART
     Indication: Type 1 diabetes mellitus
     Dosage: 6.5 IU, QD, SLIDING SCALE 3 ML
     Route: 058
     Dates: start: 2014
  2. TRESIBA [Suspect]
     Active Substance: INSULIN DEGLUDEC
     Indication: Type 1 diabetes mellitus
     Dosage: 7 IU, QD
     Route: 058
  3. NOVOLOG [Suspect]
     Active Substance: INSULIN ASPART
     Indication: Type 1 diabetes mellitus
  4. LEVOTHYROXINE [Concomitant]
     Active Substance: LEVOTHYROXINE
     Indication: Hypothyroidism
     Dosage: 112 MG, QD, SUNDAY TOOK 1.5 TABLETS A DAY

REACTIONS (15)
  - Diabetes mellitus [Recovered/Resolved]
  - Seizure [Recovered/Resolved]
  - Atrial fibrillation [Not Recovered/Not Resolved]
  - Thyroid pain [Recovered/Resolved]
  - Condition aggravated [Recovered/Resolved]
  - Pleural effusion [Not Recovered/Not Resolved]
  - Pericardial effusion [Not Recovered/Not Resolved]
  - Arthritis [Unknown]
  - Deafness [Unknown]
  - Ketoacidosis [Unknown]
  - Seizure [Unknown]
  - Stress [Unknown]
  - Sensitive skin [Unknown]
  - Blood glucose increased [Recovered/Resolved]
  - Blood glucose decreased [Recovering/Resolving]

NARRATIVE: CASE EVENT DATE: 20150101
